FAERS Safety Report 9333843 (Version 1)
Quarter: 2013Q2

REPORT INFORMATION
  Report Type: Spontaneous
  Country: IT (occurrence: None)
  Receive Date: 20130604
  Receipt Date: 20130604
  Transmission Date: 20140414
  Serious: Yes (Other)
  Sender: FDA-Public Use
  Company Number: 2013000114

PATIENT
  Age: 64 Year
  Sex: Male

DRUGS (3)
  1. ACEON (PERINDOPRIL ERBUMINE) TABLET [Suspect]
     Indication: PRODUCT USED FOR UNKNOWN INDICATION
     Route: 048
     Dates: start: 20120320, end: 20130329
  2. OMNIC [Suspect]
     Indication: PRODUCT USED FOR UNKNOWN INDICATION
     Route: 048
     Dates: start: 20120320, end: 20130319
  3. METFORMIN HYDROCHLORIDE (METFORMIN HYDROCHLORIDE) [Concomitant]

REACTIONS (1)
  - Syncope [None]
